FAERS Safety Report 5453425-X (Version None)
Quarter: 2007Q3

REPORT INFORMATION
  Report Type: 
  Country: None (occurrence: None)
  Receive Date: 20070913
  Receipt Date: 20070905
  Transmission Date: 20080115
  Serious: Yes (Other)
  Sender: FDA-Public Use
  Company Number: 2007EN000218

PATIENT
  Age: 47 Year
  Sex: Female
  Weight: 68.0396 kg

DRUGS (4)
  1. OPANA ER [Suspect]
     Indication: BACK PAIN
     Dosage: 20 MG;TID; 20 MG;BID
     Dates: start: 20070301, end: 20070101
  2. OPANA ER [Suspect]
     Indication: BACK PAIN
     Dosage: 20 MG;TID; 20 MG;BID
     Dates: start: 20070101
  3. CALCIUM [Concomitant]
  4. AVINZA [Concomitant]

REACTIONS (2)
  - INTENTIONAL DRUG MISUSE [None]
  - THERAPEUTIC RESPONSE DECREASED [None]
